FAERS Safety Report 9434168 (Version 1)
Quarter: 2013Q3

REPORT INFORMATION
  Report Type: Spontaneous
  Country: US (occurrence: None)
  Receive Date: 20130730
  Receipt Date: 20130730
  Transmission Date: 20140515
  Serious: Yes (Other)
  Sender: FDA-Public Use
  Company Number: None

PATIENT
  Age: 43 Year
  Sex: Female

DRUGS (1)
  1. DYSPORT [Suspect]
     Indication: SKIN WRINKLING
     Dates: start: 20130724, end: 20130729

REACTIONS (8)
  - Headache [None]
  - Oropharyngeal pain [None]
  - Chest discomfort [None]
  - Hypopnoea [None]
  - Asthenia [None]
  - Body temperature increased [None]
  - Sinus disorder [None]
  - Influenza like illness [None]
